FAERS Safety Report 10420994 (Version 1)
Quarter: 2014Q3

REPORT INFORMATION
  Report Type: Spontaneous
  Country: US (occurrence: None)
  Receive Date: 20140718
  Receipt Date: 20140718
  Transmission Date: 20150326
  Serious: Yes (Hospitalization, Disabling)
  Sender: FDA-Public Use
  Company Number: 1226117

PATIENT
  Age: 35 Year
  Sex: Male

DRUGS (5)
  1. KLONOPIN [Suspect]
     Active Substance: CLONAZEPAM
  2. TRAZODONE [Concomitant]
     Active Substance: TRAZODONE HYDROCHLORIDE
  3. TOPAMAX [Concomitant]
     Active Substance: TOPIRAMATE
  4. CLONIDINE (CLONIDINE) [Concomitant]
     Active Substance: CLONIDINE
  5. KLONOPIN [Suspect]
     Active Substance: CLONAZEPAM
     Indication: EPILEPTIC AURA
     Route: 048

REACTIONS (6)
  - Dyskinesia [None]
  - Unevaluable event [None]
  - Muscle twitching [None]
  - Dysphemia [None]
  - Loss of consciousness [None]
  - Convulsion [None]

NARRATIVE: CASE EVENT DATE: 201305
